FAERS Safety Report 11727530 (Version 3)
Quarter: 2016Q1

REPORT INFORMATION
  Report Type: Report from Study
  Country: JP (occurrence: JP)
  Receive Date: 20151112
  Receipt Date: 20160317
  Transmission Date: 20160525
  Serious: Yes (Hospitalization)
  Sender: FDA-Public Use
  Company Number: JP-ASTRAZENECA-2015SF08629

PATIENT
  Age: 25489 Day
  Sex: Male
  Weight: 74 kg

DRUGS (26)
  1. IRESSA [Suspect]
     Active Substance: GEFITINIB
     Indication: NON-SMALL CELL LUNG CANCER
     Route: 048
     Dates: start: 20151111
  2. MAGNESIUM OXIDE. [Concomitant]
     Active Substance: MAGNESIUM OXIDE
     Route: 048
     Dates: start: 20150416, end: 20151104
  3. CLOBETASOL PROPIONATE. [Concomitant]
     Active Substance: CLOBETASOL PROPIONATE
     Dosage: AS REQUIRED
     Route: 003
     Dates: start: 20150821
  4. GENTAMICIN SULFATE. [Concomitant]
     Active Substance: GENTAMICIN SULFATE
     Dosage: AS REQUIRED
     Route: 003
     Dates: start: 20150904
  5. IRESSA [Suspect]
     Active Substance: GEFITINIB
     Indication: NON-SMALL CELL LUNG CANCER
     Route: 048
     Dates: start: 20150417, end: 20150506
  6. HYDROCORTISONE BUTYRATE. [Concomitant]
     Active Substance: HYDROCORTISONE BUTYRATE
     Route: 003
     Dates: start: 20150423
  7. LEVOCETIRIZINE DIHYDROCHLORIDE. [Concomitant]
     Active Substance: LEVOCETIRIZINE DIHYDROCHLORIDE
     Route: 048
     Dates: start: 20150803
  8. MINOCYCLINE HYDROCHLORIDE. [Concomitant]
     Active Substance: MINOCYCLINE HYDROCHLORIDE
     Route: 048
     Dates: start: 20150821, end: 20151113
  9. PURIFIED SODIUM HYALURONATE [Concomitant]
     Route: 047
     Dates: start: 20150430
  10. URSODEOXYCHOLIC ACID [Concomitant]
     Active Substance: URSODIOL
     Route: 048
     Dates: start: 20150619, end: 20151104
  11. TEPRENONE [Concomitant]
     Active Substance: TEPRENONE
     Route: 048
     Dates: start: 20150619, end: 20151104
  12. IRESSA [Suspect]
     Active Substance: GEFITINIB
     Indication: NON-SMALL CELL LUNG CANCER
     Route: 048
     Dates: start: 20150507, end: 20150527
  13. CARPRONIUM CHLORIDE [Concomitant]
     Active Substance: CARPRONIUM CHLORIDE
     Dosage: AS REQUIRED
     Route: 003
     Dates: start: 20150904
  14. ETIZOLAM [Concomitant]
     Active Substance: ETIZOLAM
     Route: 048
     Dates: start: 20150319
  15. POVIDONE-IODINE. [Concomitant]
     Active Substance: POVIDONE-IODINE
     Route: 003
     Dates: start: 20150619
  16. BETAMETHASONE VALERATE. [Concomitant]
     Active Substance: BETAMETHASONE VALERATE
     Dosage: AS REQUIRED
     Route: 003
     Dates: start: 20150803
  17. IRESSA [Suspect]
     Active Substance: GEFITINIB
     Indication: NON-SMALL CELL LUNG CANCER
     Route: 048
     Dates: start: 20150528, end: 20151103
  18. BETAMETHASONE VALERATE. [Concomitant]
     Active Substance: BETAMETHASONE VALERATE
     Dosage: AS REQUIRED
     Route: 003
     Dates: start: 20150803
  19. ALPROSTADIL ALFADEX [Concomitant]
     Active Substance: ALPROSTADIL ALFADEX
     Dosage: AS REQUIRED
     Route: 003
     Dates: start: 20150904
  20. FAMOTIDINE. [Concomitant]
     Active Substance: FAMOTIDINE
     Route: 048
     Dates: start: 20150709, end: 20151104
  21. PREDNISOLONE ACETATE. [Concomitant]
     Active Substance: PREDNISOLONE ACETATE
     Dosage: AS REQUIRED
     Route: 003
     Dates: start: 20150803
  22. DIFLUPREDNATE [Concomitant]
     Active Substance: DIFLUPREDNATE
     Dosage: AS REQUIRED
     Route: 003
     Dates: start: 20150423
  23. CROTAMITON/HYDROCORTISONE [Concomitant]
     Dosage: AS REQUIRED
     Route: 003
     Dates: start: 20150423
  24. TACROLIMUS HYDRATE [Concomitant]
     Active Substance: TACROLIMUS
     Dosage: AS REQUIRED
     Route: 003
     Dates: start: 20150803
  25. FLUDROXYCORTIDE [Concomitant]
     Dosage: DAILY
     Route: 003
     Dates: start: 20150928
  26. SODIUM GUALENATE [Concomitant]
     Active Substance: SODIUM GUALENATE
     Dates: start: 20150427

REACTIONS (1)
  - Gastroenteritis [Recovered/Resolved]

NARRATIVE: CASE EVENT DATE: 20151102
